FAERS Safety Report 10718914 (Version 4)
Quarter: 2015Q1

REPORT INFORMATION
  Report Type: Spontaneous
  Country: US (occurrence: US)
  Receive Date: 20150119
  Receipt Date: 20150202
  Transmission Date: 20150721
  Serious: Yes (Death, Other)
  Sender: FDA-Public Use
  Company Number: US-009507513-1501USA005001

PATIENT
  Age: 75 Year
  Sex: Male
  Weight: 82.86 kg

DRUGS (2)
  1. EMEND [Suspect]
     Active Substance: APREPITANT
     Indication: NAUSEA
     Dosage: 125 MG, ONCE, DAY 1,
     Route: 048
     Dates: start: 20141001, end: 20141001
  2. EMEND [Suspect]
     Active Substance: APREPITANT
     Dosage: 80 MG, ON DAY 2 AND 3
     Route: 048
     Dates: start: 20141002, end: 20141003

REACTIONS (14)
  - Constipation [Unknown]
  - Heart sounds abnormal [Unknown]
  - Small cell lung cancer metastatic [Unknown]
  - Death [Fatal]
  - Neutropenia [Unknown]
  - Lung carcinoma cell type unspecified stage 0 [Unknown]
  - Breath sounds abnormal [Unknown]
  - Anaemia [Unknown]
  - Weight decreased [Unknown]
  - Muscular weakness [Unknown]
  - Pancytopenia [Unknown]
  - Dizziness postural [Unknown]
  - Liver function test abnormal [Unknown]
  - Coordination abnormal [Unknown]

NARRATIVE: CASE EVENT DATE: 20141010
